FAERS Safety Report 9459700 (Version 1)
Quarter: 2013Q3

REPORT INFORMATION
  Report Type: Spontaneous
  Country: GB (occurrence: GB)
  Receive Date: 20130815
  Receipt Date: 20130815
  Transmission Date: 20140515
  Serious: Yes (Disabling)
  Sender: FDA-Public Use
  Company Number: GB-EISAI INC-E2007-01278-SPO-GB

PATIENT
  Age: 48 Year
  Sex: Female

DRUGS (2)
  1. FYCOMPA (PERAMPANEL) [Suspect]
     Indication: EPILEPSY
     Dosage: 10 MG DAILY
     Route: 048
     Dates: start: 20130121
  2. TEGRETOL [Concomitant]
     Dosage: 300 MG DAILY
     Route: 048

REACTIONS (2)
  - Ear pain [Not Recovered/Not Resolved]
  - Balance disorder [Not Recovered/Not Resolved]
